FAERS Safety Report 10692790 (Version 1)
Quarter: 2014Q4

REPORT INFORMATION
  Report Type: Spontaneous
  Country: US (occurrence: None)
  Receive Date: 20141223
  Receipt Date: 20141223
  Transmission Date: 20150529
  Serious: Yes (Hospitalization)
  Sender: FDA-Public Use
  Company Number: 427491

PATIENT
  Age: 50 Year
  Sex: Male

DRUGS (8)
  1. FUROSEMIDE (FUROSEMIDE) [Concomitant]
     Active Substance: FUROSEMIDE
  2. LOVASTATIN. [Concomitant]
     Active Substance: LOVASTATIN
  3. COREG [Concomitant]
     Active Substance: CARVEDILOL
  4. DIGOXIN. [Concomitant]
     Active Substance: DIGOXIN
  5. LISINOPRIL. [Concomitant]
     Active Substance: LISINOPRIL
  6. RANITIDINE [Concomitant]
     Active Substance: RANITIDINE\RANITIDINE HYDROCHLORIDE
  7. NOVOLIN [Suspect]
     Active Substance: INSULIN HUMAN
     Indication: DIABETES MELLITUS
     Dosage: 14 UNITS, BID, SUBCUTANEOUS?
     Route: 058
     Dates: end: 20141021
  8. POTASSIUM CHLORIDE. [Concomitant]
     Active Substance: POTASSIUM CHLORIDE

REACTIONS (2)
  - Hypoglycaemic unconsciousness [None]
  - Hypokalaemia [None]

NARRATIVE: CASE EVENT DATE: 20141020
